FAERS Safety Report 7282885-7 (Version None)
Quarter: 2011Q1

REPORT INFORMATION
  Report Type: 
  Country: None (occurrence: None)
  Receive Date: 20110209
  Receipt Date: 20110128
  Transmission Date: 20110831
  Serious: Yes (Life-Threatening, Hospitalization)
  Sender: FDA-Public Use
  Company Number: JP-SANOFI-AVENTIS-2011SA005755

PATIENT
  Age: 77 Year
  Sex: Male

DRUGS (4)
  1. ELPLAT [Suspect]
     Indication: COLON CANCER
     Route: 042
     Dates: start: 20100715, end: 20100715
  2. XELODA [Suspect]
     Indication: COLON CANCER
     Route: 048
     Dates: start: 20100715
  3. ASPIRIN [Suspect]
     Indication: CAROTID ARTERY STENOSIS
     Route: 048
  4. ELPLAT [Suspect]
     Route: 042
     Dates: start: 20100831, end: 20100831

REACTIONS (15)
  - DIABETES MELLITUS INADEQUATE CONTROL [None]
  - ILEUS [None]
  - ENTEROCOLITIS [None]
  - BLISTER [None]
  - PIGMENTATION DISORDER [None]
  - GLOSSODYNIA [None]
  - DIARRHOEA [None]
  - DECREASED APPETITE [None]
  - MALAISE [None]
  - DIZZINESS [None]
  - DUODENAL ULCER [None]
  - STOMATITIS [None]
  - SHOCK [None]
  - DUODENAL ULCER HAEMORRHAGE [None]
  - HYPOGEUSIA [None]
